FAERS Safety Report 21592415 (Version 1)
Quarter: 2022Q4

REPORT INFORMATION
  Report Type: Report from Study
  Country: US (occurrence: US)
  Receive Date: 20221114
  Receipt Date: 20221114
  Transmission Date: 20230113
  Serious: No
  Sender: FDA-Public Use
  Company Number: US-ABBVIE-18P-163-2601289-00

PATIENT
  Sex: Male

DRUGS (6)
  1. HUMIRA [Suspect]
     Active Substance: ADALIMUMAB
     Indication: Crohn^s disease
     Route: 058
     Dates: start: 20161207, end: 20181031
  2. VITAMINS [Concomitant]
     Active Substance: VITAMINS
     Indication: Prophylaxis
     Route: 048
     Dates: start: 2002, end: 20180720
  3. FISH OIL [Concomitant]
     Active Substance: FISH OIL
     Indication: Crohn^s disease
     Route: 048
     Dates: start: 201609, end: 20180720
  4. BENZYL PEROXIDE [Concomitant]
     Indication: Acne
     Route: 061
     Dates: start: 20170523, end: 20170720
  5. HYDROCORTISONE LOTION [Concomitant]
     Indication: Acne
     Route: 061
     Dates: start: 20171211, end: 20190715
  6. BACTROBAN [Concomitant]
     Active Substance: MUPIROCIN\MUPIROCIN CALCIUM
     Indication: Acne
     Route: 048
     Dates: start: 20160824, end: 20201101

REACTIONS (1)
  - Seborrhoeic dermatitis [Recovered/Resolved]

NARRATIVE: CASE EVENT DATE: 20181018
